FAERS Safety Report 15991739 (Version 3)
Quarter: 2019Q2

REPORT INFORMATION
  Report Type: Spontaneous
  Country: GB (occurrence: GB)
  Receive Date: 20190221
  Receipt Date: 20190513
  Transmission Date: 20190711
  Serious: Yes (Hospitalization, Other)
  Sender: FDA-Public Use
  Company Number: GB-MYLANLABS-2019M1015623

PATIENT
  Age: 44 Year
  Sex: Female

DRUGS (3)
  1. CYCLOPHOSPHAMIDE. [Suspect]
     Active Substance: CYCLOPHOSPHAMIDE
     Indication: SARCOIDOSIS
     Dosage: UNK
     Route: 065
  2. MOXIFLOXACIN. [Suspect]
     Active Substance: MOXIFLOXACIN
     Indication: INFECTION
     Dosage: UNK
  3. PREDNISOLONE. [Suspect]
     Active Substance: PREDNISOLONE
     Indication: SARCOIDOSIS
     Dosage: UNK
     Route: 065

REACTIONS (9)
  - Ulcer [Unknown]
  - Pyrexia [Unknown]
  - Skin lesion [Unknown]
  - Tachycardia [Unknown]
  - Infection [Unknown]
  - Condition aggravated [Unknown]
  - Lethargy [Unknown]
  - Pathogen resistance [Unknown]
  - Mycobacterium chelonae infection [Unknown]
